FAERS Safety Report 7610125-5 (Version None)
Quarter: 2011Q3

REPORT INFORMATION
  Report Type: 
  Country: None (occurrence: None)
  Receive Date: 20110715
  Receipt Date: 20110706
  Transmission Date: 20111222
  Serious: No
  Sender: FDA-Public Use
  Company Number: US-BIOGENIDEC-2011BI021017

PATIENT
  Age: 66 Year
  Sex: Female

DRUGS (1)
  1. TYSABRI [Suspect]
     Indication: MULTIPLE SCLEROSIS
     Route: 042
     Dates: start: 20110331

REACTIONS (10)
  - FOREIGN BODY [None]
  - PARAESTHESIA [None]
  - PAIN IN EXTREMITY [None]
  - MEMORY IMPAIRMENT [None]
  - JOINT INJURY [None]
  - BACK PAIN [None]
  - PAIN [None]
  - FALL [None]
  - ARTHRALGIA [None]
  - HYPOAESTHESIA [None]
